FAERS Safety Report 10412705 (Version 1)
Quarter: 2014Q2

REPORT INFORMATION
  Report Type: Spontaneous
  Country: US (occurrence: None)
  Receive Date: 20140604
  Receipt Date: 20140604
  Transmission Date: 20141212
  Serious: Yes (Hospitalization, Other)
  Sender: FDA-Public Use
  Company Number: 163-POMAL-14022104

PATIENT
  Age: 73 Year
  Sex: Male

DRUGS (1)
  1. POMALYST (POMALIDOMIDE) (3  MILLIGRAM, CAPSULES) [Suspect]
     Indication: PLASMA CELL MYELOMA
     Dosage: 21 IN 28 D
     Route: 048
     Dates: start: 201305

REACTIONS (3)
  - White blood cell count decreased [None]
  - Bronchitis [None]
  - Platelet count decreased [None]
